FAERS Safety Report 10285421 (Version 1)
Quarter: 2014Q3

REPORT INFORMATION
  Report Type: Spontaneous
  Country: JP (occurrence: JP)
  Receive Date: 20140708
  Receipt Date: 20140708
  Transmission Date: 20150326
  Serious: Yes (Other)
  Sender: FDA-Public Use
  Company Number: PHHY2014JP083125

PATIENT
  Sex: Male

DRUGS (6)
  1. AMPICILLIN+SULBACTAM [Suspect]
     Active Substance: AMPICILLIN SODIUM\SULBACTAM SODIUM
     Route: 064
  2. GRANULOCYTE COLONY STIMULATING FACTOR [Suspect]
     Active Substance: GRANULOCYTE COLONY-STIMULATING FACTOR NOS
     Route: 064
  3. UTERON [Suspect]
     Active Substance: RITODRINE HYDROCHLORIDE
     Route: 064
  4. UTERON [Suspect]
     Active Substance: RITODRINE HYDROCHLORIDE
     Route: 064
  5. MAGNESIUM [Suspect]
     Active Substance: MAGNESIUM
     Route: 064
  6. CYSTEINE/GLYCINE/GLYCYRRHIZINATE [Suspect]
     Active Substance: CYSTEINE\GLYCINE\GLYCYRRHIZIN
     Dosage: UNK
     Route: 064

REACTIONS (3)
  - Tachypnoea [Recovering/Resolving]
  - Premature baby [Unknown]
  - Foetal exposure during pregnancy [Unknown]
